FAERS Safety Report 5768135-9 (Version None)
Quarter: 2008Q2

REPORT INFORMATION
  Report Type: 
  Country: None (occurrence: None)
  Receive Date: 20080601
  Receipt Date: 20080226
  Transmission Date: 20081010
  Serious: No
  Sender: FDA-Public Use
  Company Number: US200712003425

PATIENT
  Age: 71 Year
  Sex: Male
  Weight: 94.3 kg

DRUGS (21)
  1. BYETTA [Suspect]
     Indication: TYPE 2 DIABETES MELLITUS
     Dosage: 5 UG, 2/D, SUBCUTANEOUS; 10 UG, 2/D, SUBCUTANEOUS; 5 UG, 2/D, SUBCUTANEOUS
     Route: 058
     Dates: start: 20071115, end: 20080101
  2. BYETTA [Suspect]
     Indication: TYPE 2 DIABETES MELLITUS
     Dosage: 5 UG, 2/D, SUBCUTANEOUS; 10 UG, 2/D, SUBCUTANEOUS; 5 UG, 2/D, SUBCUTANEOUS
     Route: 058
     Dates: start: 20080101, end: 20080101
  3. BYETTA [Suspect]
     Indication: TYPE 2 DIABETES MELLITUS
     Dosage: 5 UG, 2/D, SUBCUTANEOUS; 10 UG, 2/D, SUBCUTANEOUS; 5 UG, 2/D, SUBCUTANEOUS
     Route: 058
     Dates: start: 20080131
  4. EXENATIDE 5MCG PEN, DISPOSABLE DEVICE (EXENATIDE PEN (5MCG)) PEN,DISPO [Concomitant]
  5. EXENATIDE 5MCG PEN, DISPOSABLE DEVICE (EXENATIDE PEN (5MCG)) PEN,DISPO [Concomitant]
  6. EXENATIDE 5MCG PEN, DISPOSABLE DEVICE (EXENATIDE PEN (5MCG)) PEN,DISPO [Concomitant]
  7. METFORMIN HCL [Concomitant]
  8. CALCIUM CHANNEL BLOCKERS [Concomitant]
  9. ASPIRIN [Concomitant]
  10. COLACE (DOCUSATE SODIUM) [Concomitant]
  11. FLOIC ACID (FOLIC ACID) [Concomitant]
  12. ALTACE [Concomitant]
  13. FEROCYL (FERROUS FUMARATE) [Concomitant]
  14. COQ10 (UBIDECARENONE) [Concomitant]
  15. NEXIUM [Concomitant]
  16. COREG [Concomitant]
  17. HYDROCHLOROTHIAZIDE [Concomitant]
  18. NORVASC [Concomitant]
  19. LIPITOR [Concomitant]
  20. VYTORIN [Concomitant]
  21. BYETTA [Suspect]

REACTIONS (4)
  - ABDOMINAL PAIN UPPER [None]
  - CREATININE RENAL CLEARANCE DECREASED [None]
  - GLOMERULAR FILTRATION RATE DECREASED [None]
  - NAUSEA [None]
